FAERS Safety Report 7652750-1 (Version None)
Quarter: 2011Q3

REPORT INFORMATION
  Report Type: 
  Country: None (occurrence: None)
  Receive Date: 20110803
  Receipt Date: 20110726
  Transmission Date: 20111222
  Serious: Yes (Hospitalization)
  Sender: FDA-Public Use
  Company Number: US-JNJFOC-20110711582

PATIENT
  Age: 41 Year
  Sex: Female

DRUGS (4)
  1. RISPERDAL [Suspect]
     Indication: SCHIZOAFFECTIVE DISORDER
     Route: 048
     Dates: start: 20110601, end: 20110701
  2. LORAZEPAM [Concomitant]
     Route: 048
  3. TRAZODONE HYDROCHLORIDE [Concomitant]
     Route: 048
  4. RISPERDAL CONSTA [Suspect]
     Indication: SCHIZOAFFECTIVE DISORDER
     Route: 030
     Dates: start: 20110601

REACTIONS (3)
  - BLOOD PROLACTIN INCREASED [None]
  - GALACTORRHOEA [None]
  - HOSPITALISATION [None]
